FAERS Safety Report 7831457-1 (Version None)
Quarter: 2011Q4

REPORT INFORMATION
  Report Type: 
  Country: None (occurrence: None)
  Receive Date: 20111021
  Receipt Date: 20111013
  Transmission Date: 20120403
  Serious: Yes (Hospitalization)
  Sender: FDA-Public Use
  Company Number: US-GENZYME-CERZ-1002279

PATIENT
  Sex: Female
  Weight: 6 kg

DRUGS (1)
  1. CEREZYME [Suspect]
     Indication: GAUCHER'S DISEASE
     Dosage: 400 U, QW
     Route: 042
     Dates: start: 20110601

REACTIONS (1)
  - RESPIRATORY DISORDER [None]
